FAERS Safety Report 7555903-6 (Version None)
Quarter: 2011Q2

REPORT INFORMATION
  Report Type: 
  Country: None (occurrence: None)
  Receive Date: 20110618
  Receipt Date: 20110120
  Transmission Date: 20111010
  Serious: Yes (Other)
  Sender: FDA-Public Use
  Company Number: US-BAYER-201037232NA

PATIENT
  Sex: Female
  Weight: 118.37 kg

DRUGS (4)
  1. IBUPROFEN [Concomitant]
     Indication: PAIN
     Dosage: UNK
     Route: 048
  2. IBUPROFEN [Concomitant]
     Indication: DYSMENORRHOEA
  3. YASMIN [Suspect]
     Indication: MENSTRUATION IRREGULAR
     Dosage: UNK
     Dates: start: 20020227, end: 20070330
  4. DIAMOX [Concomitant]
     Indication: MASS
     Dosage: UNK
     Dates: start: 20050116

REACTIONS (6)
  - CHOLECYSTITIS CHRONIC [None]
  - GALLBLADDER INJURY [None]
  - CHOLELITHIASIS [None]
  - PAIN [None]
  - SCAR [None]
  - EMOTIONAL DISTRESS [None]
